FAERS Safety Report 7790199-1 (Version None)
Quarter: 2011Q3

REPORT INFORMATION
  Report Type: 
  Country: None (occurrence: None)
  Receive Date: 20110930
  Receipt Date: 20101018
  Transmission Date: 20111222
  Serious: No
  Sender: FDA-Public Use
  Company Number: US-ASTRAZENECA-2010SE30098

PATIENT
  Age: 751 Month
  Sex: Female
  Weight: 74.4 kg

DRUGS (11)
  1. PROBIOTIC [Concomitant]
  2. CITALOPRAM [Concomitant]
  3. DICYCLOMINE [Concomitant]
  4. SIMVASTATIN [Concomitant]
  5. CLONAZEPAM [Concomitant]
  6. CALCIUM+D [Concomitant]
  7. ARIMIDEX [Suspect]
     Route: 048
  8. ASPIRIN [Concomitant]
  9. ARIMIDEX [Suspect]
     Indication: BREAST CANCER
     Route: 048
     Dates: start: 20100225, end: 20100910
  10. AMITRIPTYLINE HCL [Concomitant]
  11. VITAMIN D [Concomitant]

REACTIONS (13)
  - IRRITABLE BOWEL SYNDROME [None]
  - PELVIC PAIN [None]
  - FLATULENCE [None]
  - CONSTIPATION [None]
  - BACK PAIN [None]
  - POLYP [None]
  - WEIGHT DECREASED [None]
  - ABDOMINAL PAIN [None]
  - VISUAL IMPAIRMENT [None]
  - BLOOD URINE PRESENT [None]
  - IMPAIRED WORK ABILITY [None]
  - VAGINAL HAEMORRHAGE [None]
  - METRORRHAGIA [None]
